FAERS Safety Report 5819907-3 (Version None)
Quarter: 2008Q3

REPORT INFORMATION
  Report Type: 
  Country: None (occurrence: None)
  Receive Date: 20080717
  Receipt Date: 20080710
  Transmission Date: 20090109
  Serious: Yes (Life-Threatening, Hospitalization)
  Sender: FDA-Public Use
  Company Number: 2008AL008099

PATIENT
  Age: 69 Year
  Sex: Male

DRUGS (6)
  1. DIGOXIN [Suspect]
     Indication: ARRHYTHMIA
     Dosage: 0.25MG DAILY PO
     Route: 048
     Dates: start: 20060101
  2. METFORMIN HCL [Concomitant]
  3. ALLERGAN [Concomitant]
  4. ATENOLOL [Concomitant]
  5. ALLOPURINOL [Concomitant]
  6. NIFEDIPINE [Concomitant]

REACTIONS (6)
  - DYSSTASIA [None]
  - HEART RATE DECREASED [None]
  - HEART RATE IRREGULAR [None]
  - MYOCARDIAL INFARCTION [None]
  - THERAPEUTIC AGENT TOXICITY [None]
  - VISION BLURRED [None]
